FAERS Safety Report 4588646-1 (Version None)
Quarter: 2005Q1

REPORT INFORMATION
  Report Type: 
  Country: None (occurrence: None)
  Receive Date: 20050214
  Receipt Date: 20050214
  Transmission Date: 20050727
  Serious: Yes (Hospitalization)
  Sender: FDA-Public Use
  Company Number: None

PATIENT
  Age: 88 Year
  Sex: Male
  Weight: 86.1834 kg

DRUGS (1)
  1. TEQUIN [Suspect]
     Indication: INFECTION
     Dosage: 400MG PO Q DAY
     Route: 048
     Dates: start: 20040721, end: 20040726

REACTIONS (1)
  - BLOOD GLUCOSE INCREASED [None]
